FAERS Safety Report 15492631 (Version 2)
Quarter: 2018Q4

REPORT INFORMATION
  Report Type: Spontaneous
  Country: BG (occurrence: BG)
  Receive Date: 20181012
  Receipt Date: 20181107
  Transmission Date: 20190205
  Serious: Yes (Hospitalization, Other)
  Sender: FDA-Public Use
  Company Number: BG-BAUSCH-BL-2018-028012

PATIENT
  Age: 74 Year
  Sex: Male

DRUGS (5)
  1. DICLOFENAC DUO [Suspect]
     Active Substance: DICLOFENAC SODIUM
     Route: 065
     Dates: start: 20181006, end: 20181006
  2. ANALGIN [Concomitant]
     Indication: PAIN
     Dosage: ONE TABLET ALONG WITH ASPIRINE AND DICLOFENAC
  3. ASPIRINE [Concomitant]
     Active Substance: ASPIRIN
     Indication: PAIN
     Dosage: ONE TABLET ALONG WITH ANLAGIN AND DICLOFENAC
  4. DICLOFENAC DUO [Suspect]
     Active Substance: DICLOFENAC SODIUM
     Route: 065
     Dates: start: 20181005, end: 20181005
  5. DICLOFENAC DUO [Suspect]
     Active Substance: DICLOFENAC SODIUM
     Indication: PAIN
     Dosage: ONE OR TWO CAPSULES PER DAY
     Route: 065
     Dates: start: 20180923, end: 20181004

REACTIONS (10)
  - Swelling [Not Recovered/Not Resolved]
  - Urinary incontinence [Not Recovered/Not Resolved]
  - Prescription drug used without a prescription [Recovered/Resolved]
  - Creatinine urine increased [Unknown]
  - Infection [Unknown]
  - Hypertension [Unknown]
  - Overdose [Recovered/Resolved]
  - Heart rate increased [Not Recovered/Not Resolved]
  - Wound [Unknown]
  - Renal disorder [Not Recovered/Not Resolved]

NARRATIVE: CASE EVENT DATE: 2018
